FAERS Safety Report 13953106 (Version 3)
Quarter: 2017Q4

REPORT INFORMATION
  Report Type: Spontaneous
  Country: US (occurrence: US)
  Receive Date: 20170911
  Receipt Date: 20171018
  Transmission Date: 20180320
  Serious: Yes (Other)
  Sender: FDA-Public Use
  Company Number: US-JNJCP-30000404976

PATIENT
  Age: 34 Year
  Sex: Female
  Weight: 67 kg

DRUGS (2)
  1. CLEAN + CLEAR  PERSA-GEL, MAXIMUM STRENGTH [Suspect]
     Active Substance: BENZOYL PEROXIDE
     Indication: ACNE
     Dosage: LITTLE DOT, ONCE
     Route: 061
     Dates: start: 20170826, end: 20170826
  2. IUD NOS [Concomitant]
     Active Substance: COPPER OR LEVONORGESTREL
     Indication: CONTRACEPTION

REACTIONS (2)
  - Application site erythema [Recovered/Resolved]
  - Eye swelling [Recovered/Resolved]

NARRATIVE: CASE EVENT DATE: 20170827
